FAERS Safety Report 8086870-7 (Version None)
Quarter: 2012Q1

REPORT INFORMATION
  Report Type: 
  Country: None (occurrence: None)
  Receive Date: 20120128
  Receipt Date: 20110614
  Transmission Date: 20120608
  Serious: No
  Sender: FDA-Public Use
  Company Number: US-ABBOTT-11P-163-0732342-00

PATIENT
  Age: 52 Year
  Sex: Female

DRUGS (7)
  1. AZATHIOPRINE [Concomitant]
     Indication: PRODUCT USED FOR UNKNOWN INDICATION
     Dates: start: 20010101
  2. CALCITRIOL [Concomitant]
     Indication: PRODUCT USED FOR UNKNOWN INDICATION
  3. ASPIRIN W/CODEINE [Concomitant]
     Indication: POST GASTRIC SURGERY SYNDROME
  4. XANAX [Concomitant]
     Indication: PRODUCT USED FOR UNKNOWN INDICATION
  5. HUMIRA [Suspect]
     Indication: CROHN'S DISEASE
     Dates: start: 20110401
  6. NEXIUM [Concomitant]
     Indication: DYSPEPSIA
  7. UNKNOWN SUPPLEMENTS [Concomitant]
     Indication: PRODUCT USED FOR UNKNOWN INDICATION

REACTIONS (4)
  - GINGIVAL BLEEDING [None]
  - DRUG INEFFECTIVE [None]
  - ARTHRALGIA [None]
  - INJECTION SITE PAIN [None]
